FAERS Safety Report 22057426 (Version 1)
Quarter: 2023Q1

REPORT INFORMATION
  Report Type: Spontaneous
  Country: US (occurrence: US)
  Receive Date: 20230303
  Receipt Date: 20230303
  Transmission Date: 20230417
  Serious: No
  Sender: FDA-Public Use
  Company Number: US-Axellia-004347

PATIENT
  Age: 36 Year
  Sex: Male
  Weight: 362.42 kg

DRUGS (1)
  1. POLYMYXIN B [Suspect]
     Active Substance: POLYMYXIN B
     Indication: Urinary tract infection

REACTIONS (4)
  - Urinary tract infection [Unknown]
  - Condition aggravated [Unknown]
  - Haematuria [Unknown]
  - Creatinine renal clearance decreased [Unknown]
